FAERS Safety Report 18208472 (Version 1)
Quarter: 2020Q3

REPORT INFORMATION
  Report Type: Spontaneous
  Country: PT (occurrence: PT)
  Receive Date: 20200828
  Receipt Date: 20200828
  Transmission Date: 20201103
  Serious: Yes (Other)
  Sender: FDA-Public Use
  Company Number: PT-BAUSCH-BL-2020-024475

PATIENT
  Age: 59 Year
  Sex: Male

DRUGS (1)
  1. METFORMIN [Suspect]
     Active Substance: METFORMIN HYDROCHLORIDE
     Indication: TYPE 2 DIABETES MELLITUS
     Route: 065

REACTIONS (9)
  - Birt-Hogg-Dube syndrome [Not Recovered/Not Resolved]
  - Headache [Recovering/Resolving]
  - Renal neoplasm [Unknown]
  - Renal cell carcinoma [Unknown]
  - Nodule [Unknown]
  - Nausea [Recovering/Resolving]
  - Malaise [Recovering/Resolving]
  - Abdominal mass [Unknown]
  - Renal oncocytoma [Not Recovered/Not Resolved]
